FAERS Safety Report 6046735-9 (Version None)
Quarter: 2009Q1

REPORT INFORMATION
  Report Type: 
  Country: None (occurrence: None)
  Receive Date: 20090122
  Receipt Date: 20090112
  Transmission Date: 20090719
  Serious: Yes (Other)
  Sender: FDA-Public Use
  Company Number: US-PFIZER INC-2009155269

PATIENT
  Age: 56 Year
  Sex: Female
  Weight: 226.79 kg

DRUGS (11)
  1. CELEBREX [Suspect]
     Dosage: 200 MG, 2X/DAY
     Dates: start: 20000101
  2. LIPITOR [Suspect]
     Dosage: 10 MG, 1X/DAY
     Dates: start: 20060601
  3. FLUOXETINE HYDROCHLORIDE [Concomitant]
     Dosage: UNK
  4. METFORMIN HYDROCHLORIDE [Concomitant]
     Dosage: UNK
  5. LEVOTHYROXINE SODIUM [Concomitant]
     Dosage: UNK
  6. NEXIUM [Concomitant]
     Dosage: UNK
  7. COZAAR [Concomitant]
     Dosage: UNK
  8. FUROSEMIDE [Concomitant]
     Dosage: UNK
  9. BYETTA [Concomitant]
     Dosage: UNK
  10. RHINOCORT [Concomitant]
     Dosage: UNK
     Route: 045
  11. OPHTHALMOLOGICALS [Concomitant]
     Dosage: UNK
     Route: 047

REACTIONS (1)
  - GASTRIC BANDING [None]
